FAERS Safety Report 7906999-0 (Version None)
Quarter: 2011Q4

REPORT INFORMATION
  Report Type: 
  Country: None (occurrence: None)
  Receive Date: 20111110
  Receipt Date: 20111103
  Transmission Date: 20120403
  Serious: Yes (Death, Hospitalization, Other)
  Sender: FDA-Public Use
  Company Number: US-PFIZER INC-2009186007

PATIENT
  Sex: Male
  Weight: 95 kg

DRUGS (32)
  1. LIPITOR [Concomitant]
     Dosage: 40 MG, UNK
     Dates: start: 20070622
  2. HYDROCORTISONE [Concomitant]
     Dosage: UNK
     Dates: start: 20070622
  3. OXANDRIN [Concomitant]
     Dosage: 10 MG, 2X/DAY
     Dates: start: 20070614
  4. DARVOCET [Concomitant]
     Dosage: UNK
     Dates: start: 20070622
  5. PHENYTOIN [Concomitant]
     Dosage: 200 MG, UNK
     Dates: start: 20070623
  6. LISINOPRIL [Concomitant]
     Dosage: 10 MG, DAILY
     Dates: start: 20070614
  7. LORTAB [Concomitant]
     Dosage: UNK, AS NEEDED
     Dates: start: 20070614
  8. DARVOCET-N 50 [Concomitant]
     Dosage: 100 MG, AS NEEDED
     Dates: start: 20070614
  9. DOXYCYCLINE [Concomitant]
     Dosage: 100 MG, UNK
     Dates: start: 20070623
  10. PREDNISOLONE [Concomitant]
     Dosage: 60 MG, UNK
     Dates: start: 20070622
  11. POTASSIUM CHLORIDE [Concomitant]
     Dosage: 20 MEQ, TWO TABLETS DAILY
     Route: 048
     Dates: start: 20070614
  12. KEFLEX [Concomitant]
     Dosage: 500 MG, 4X/DAY
     Dates: start: 20070614
  13. COMBIVENT [Concomitant]
     Dosage: TWO PUFFS TWICE DAILY
     Dates: start: 20070614
  14. CETIRIZINE [Concomitant]
     Dosage: 10 MG, UNK
     Dates: start: 20070623
  15. LORAZEPAM [Concomitant]
     Dosage: 1 MG, 2X/DAY (AS NEEDED)
     Dates: start: 20070614
  16. ADVAIR DISKUS 100/50 [Concomitant]
     Dosage: 250/50 ONE PUFF TWICE DAILY
     Dates: start: 20070614
  17. ATIVAN [Concomitant]
     Dosage: 1 MG, AS NEEDED
     Dates: start: 20070614
  18. AZITHROMYCIN [Concomitant]
     Dosage: 250 MG, UNK
     Dates: start: 20070623
  19. TOPROL-XL [Concomitant]
     Dosage: 25 MG, DAILY
     Dates: start: 20070614
  20. ATARAX [Concomitant]
     Dosage: UNK
     Dates: start: 20070622
  21. FLOVENT [Concomitant]
     Dosage: UNK, TWICE DAILY
     Dates: start: 20070614
  22. SULFATRIM-DS [Concomitant]
     Dosage: UNK, TWICE DAILY
     Dates: start: 20070614
  23. AMITRIPTYLINE [Concomitant]
     Dosage: 50 MG, AT BED TIME
     Dates: start: 20070614
  24. TOPROL-XL [Concomitant]
     Dosage: 50 MG, UNK
  25. HYDROXYZINE [Concomitant]
     Indication: PRURITUS
     Dosage: 25 MG, AS NEEDED
     Dates: start: 20070614
  26. DILANTIN [Suspect]
     Indication: CONVULSION
     Dosage: 100 MG, UNK
     Route: 048
     Dates: start: 20070501
  27. SIMVASTATIN [Concomitant]
     Dosage: 40 MG, AT BED TIME
     Dates: start: 20070614
  28. ACETYLSALICYLIC ACID [Concomitant]
     Dosage: 81 MG, DAILY
     Dates: start: 20070614
  29. DECADRON [Concomitant]
     Dosage: 1.5 MG, 2X/DAY
     Dates: start: 20070614
  30. SPIRIVA [Concomitant]
     Dosage: 36MCG
     Dates: start: 20070623
  31. TIOTROPIUM BROMIDE [Concomitant]
     Dosage: TWO PUFFS DAILY
     Dates: start: 20070614
  32. CHLORZOXAZONE [Concomitant]
     Dosage: 500 MG, 3X/DAY
     Dates: start: 20070614

REACTIONS (2)
  - STEVENS-JOHNSON SYNDROME [None]
  - TOXIC EPIDERMAL NECROLYSIS [None]
